FAERS Safety Report 5610829-X (Version None)
Quarter: 2008Q1

REPORT INFORMATION
  Report Type: 
  Country: None (occurrence: None)
  Receive Date: 20080201
  Receipt Date: 20080118
  Transmission Date: 20080703
  Serious: Yes (Life-Threatening, Hospitalization)
  Sender: FDA-Public Use
  Company Number: JP-AMGEN-US259286

PATIENT
  Sex: Female
  Weight: 31 kg

DRUGS (14)
  1. ENBREL [Suspect]
     Indication: RHEUMATOID ARTHRITIS
     Route: 058
     Dates: start: 20070503
  2. PREDNISOLONE [Suspect]
     Indication: RHEUMATOID ARTHRITIS
     Route: 048
     Dates: start: 19980101, end: 20061201
  3. PREDNISOLONE [Suspect]
     Dates: start: 20061201, end: 20061201
  4. PREDNISOLONE [Suspect]
     Dates: start: 20061201
  5. PROMAC [Concomitant]
     Indication: GASTRIC ULCER
     Route: 048
     Dates: start: 20071207
  6. ALLOPURINOL [Concomitant]
     Indication: HYPERURICAEMIA
     Route: 048
  7. GASCON [Concomitant]
     Indication: ABDOMINAL DISTENSION
     Route: 048
  8. ALENDRONATE SODIUM [Concomitant]
     Indication: OSTEOPOROSIS
     Route: 048
     Dates: start: 20070320, end: 20071127
  9. ALOSENN [Concomitant]
     Indication: CONSTIPATION
     Route: 048
  10. MAGNESIUM OXIDE [Concomitant]
     Indication: CONSTIPATION
     Route: 048
  11. ZOLPIDEM TARTRATE [Concomitant]
     Indication: INSOMNIA
     Route: 048
  12. SOLANAX [Concomitant]
     Indication: INSOMNIA
     Route: 048
     Dates: start: 20061002
  13. PREDONINE [Concomitant]
     Indication: RHEUMATOID ARTHRITIS
     Route: 048
  14. GLYSENNID [Concomitant]
     Indication: CONSTIPATION
     Route: 048

REACTIONS (3)
  - HAEMORRHAGIC DIATHESIS [None]
  - LUNG INFECTION [None]
  - THROMBOCYTOPENIA [None]
